FAERS Safety Report 15263760 (Version 1)
Quarter: 2018Q4

REPORT INFORMATION
  Report Type: Spontaneous
  Country: DE (occurrence: DE)
  Receive Date: 20180810
  Receipt Date: 20180810
  Transmission Date: 20190204
  Serious: Yes (Other)
  Sender: FDA-Public Use
  Company Number: DE-HIKMA PHARMACEUTICALS USA INC.-DE-H14001-18-06765

PATIENT
  Sex: Female
  Weight: 56 kg

DRUGS (25)
  1. PREDNISONE. [Suspect]
     Active Substance: PREDNISONE
     Indication: DIFFUSE LARGE B-CELL LYMPHOMA
     Dosage: 500 MG, UNK
     Route: 048
     Dates: start: 20180502, end: 20180506
  2. VINCRISTINE [Suspect]
     Active Substance: VINCRISTINE
     Indication: DIFFUSE LARGE B-CELL LYMPHOMA
     Dosage: 2 MG, UNK
     Route: 041
     Dates: start: 20180613, end: 20180613
  3. RIXIMYO [Suspect]
     Active Substance: RITUXIMAB
     Indication: DIFFUSE LARGE B-CELL LYMPHOMA
     Dosage: 600 MG, UNK
     Route: 041
     Dates: start: 20180523, end: 20180523
  4. PREDNISONE. [Suspect]
     Active Substance: PREDNISONE
     Dosage: 500 MG, UNK
     Route: 048
     Dates: start: 20180523, end: 20180527
  5. PREDNISONE. [Suspect]
     Active Substance: PREDNISONE
     Dosage: 500 MG, UNK
     Route: 048
     Dates: start: 20180704, end: 20180708
  6. PREDNISONE. [Suspect]
     Active Substance: PREDNISONE
     Dosage: 500 MG, DAYS OF TREATMENT 5
     Route: 048
     Dates: start: 20180411, end: 20180415
  7. RIXIMYO [Suspect]
     Active Substance: RITUXIMAB
     Dosage: 600 MG, UNK
     Route: 041
     Dates: start: 20180502, end: 20180502
  8. CYCLOPHOSPHAMIDE. [Suspect]
     Active Substance: CYCLOPHOSPHAMIDE
     Dosage: 1200 MG, UNK
     Route: 041
     Dates: start: 20180613, end: 20180613
  9. DOXORUBICIN [Suspect]
     Active Substance: DOXORUBICIN
     Dosage: 80 MG, UNK
     Route: 041
     Dates: start: 20180704, end: 20180704
  10. PREDNISONE. [Suspect]
     Active Substance: PREDNISONE
     Dosage: 500 MG, UNK
     Route: 048
     Dates: start: 20180613, end: 20180617
  11. VINCRISTINE [Suspect]
     Active Substance: VINCRISTINE
     Dosage: 1 MG, UNK
     Route: 041
     Dates: start: 20180704, end: 20180704
  12. VINCRISTINE [Suspect]
     Active Substance: VINCRISTINE
     Dosage: 2 MG, (INFUSION RATE 20 ML/MIN)
     Route: 041
     Dates: start: 20180412, end: 20180412
  13. DOXORUBICIN [Suspect]
     Active Substance: DOXORUBICIN
     Indication: DIFFUSE LARGE B-CELL LYMPHOMA
     Dosage: 80 MG, UNK
     Route: 041
     Dates: start: 20180523, end: 20180523
  14. CYCLOPHOSPHAMIDE. [Suspect]
     Active Substance: CYCLOPHOSPHAMIDE
     Dosage: 1200 MG, UNK
     Route: 041
     Dates: start: 20180502, end: 20180502
  15. DOXORUBICIN [Suspect]
     Active Substance: DOXORUBICIN
     Dosage: 80 MG, UNK
     Route: 041
     Dates: start: 20180412, end: 20180412
  16. DOXORUBICIN [Suspect]
     Active Substance: DOXORUBICIN
     Dosage: 80 MG, UNK
     Route: 041
     Dates: start: 20180613, end: 20180613
  17. CYCLOPHOSPHAMIDE. [Suspect]
     Active Substance: CYCLOPHOSPHAMIDE
     Indication: DIFFUSE LARGE B-CELL LYMPHOMA
     Dosage: 1200 MG, FROM 10:00 TO 10:30
     Route: 041
     Dates: start: 20180412, end: 20180412
  18. DOXORUBICIN [Suspect]
     Active Substance: DOXORUBICIN
     Dosage: 80 MG, UNK
     Route: 041
     Dates: start: 20180502, end: 20180502
  19. RIXIMYO [Suspect]
     Active Substance: RITUXIMAB
     Dosage: 600 MG, UNK
     Route: 041
     Dates: start: 20180613, end: 20180613
  20. CYCLOPHOSPHAMIDE. [Suspect]
     Active Substance: CYCLOPHOSPHAMIDE
     Dosage: 1200 MG, UNK
     Route: 041
     Dates: start: 20180704, end: 20180704
  21. RIXIMYO [Suspect]
     Active Substance: RITUXIMAB
     Dosage: 600 MG, UNK
     Route: 041
     Dates: start: 20180704, end: 20180704
  22. CYCLOPHOSPHAMIDE. [Suspect]
     Active Substance: CYCLOPHOSPHAMIDE
     Dosage: 1200 MG, UNK
     Route: 041
     Dates: start: 20180523, end: 20180523
  23. VINCRISTINE [Suspect]
     Active Substance: VINCRISTINE
     Dosage: 2 MG, UNK
     Route: 041
     Dates: start: 20180523, end: 20180523
  24. VINCRISTINE [Suspect]
     Active Substance: VINCRISTINE
     Dosage: 2 MG, UNK
     Route: 041
     Dates: start: 20180502, end: 20180502
  25. RIXIMYO [Suspect]
     Active Substance: RITUXIMAB
     Dosage: 590 MG, (INFUSION RATE 26 ML/MIN FROM 12:10 TO 13:10)
     Route: 041
     Dates: start: 20180411, end: 20180411

REACTIONS (2)
  - Constipation [Recovered/Resolved]
  - Polyneuropathy [Not Recovered/Not Resolved]

NARRATIVE: CASE EVENT DATE: 20180417
